FAERS Safety Report 8513074-3 (Version None)
Quarter: 2012Q3

REPORT INFORMATION
  Report Type: 
  Country: None (occurrence: None)
  Receive Date: 20120716
  Receipt Date: 20120702
  Transmission Date: 20120928
  Serious: Yes (Life-Threatening, Hospitalization)
  Sender: FDA-Public Use
  Company Number: TR-009507513-2012SP032968

PATIENT

DRUGS (1)
  1. CLARITIN [Suspect]
     Dosage: UNK, UNKNOWN

REACTIONS (3)
  - SINUS TACHYCARDIA [None]
  - POISONING [None]
  - OVERDOSE [None]
